FAERS Safety Report 25307857 (Version 2)
Quarter: 2025Q2

REPORT INFORMATION
  Report Type: Spontaneous
  Country: FR (occurrence: FR)
  Receive Date: 20250513
  Receipt Date: 20250602
  Transmission Date: 20250716
  Serious: No
  Sender: MYLAN
  Company Number: FR-MYLANLABS-2025M1040281

PATIENT
  Sex: Male

DRUGS (1)
  1. EPIPEN [Suspect]
     Active Substance: EPINEPHRINE
     Indication: Product used for unknown indication

REACTIONS (2)
  - Liquid product physical issue [Unknown]
  - Product quality issue [Unknown]
